FAERS Safety Report 9016702 (Version 3)
Quarter: 2014Q1

REPORT INFORMATION
  Report Type: Spontaneous
  Country: US (occurrence: US)
  Receive Date: 20130116
  Receipt Date: 20140116
  Transmission Date: 20141002
  Serious: Yes (Hospitalization, Other)
  Sender: FDA-Public Use
  Company Number: US-009507513-1301USA005264

PATIENT
  Sex: Female
  Weight: 86.17 kg

DRUGS (2)
  1. NUVARING [Suspect]
     Indication: CONTRACEPTION
     Dosage: UNK
     Route: 067
     Dates: start: 201104, end: 20110509
  2. NORVASC [Concomitant]
     Indication: HYPERTENSION
     Dosage: 10 MG, QD
     Dates: start: 2006

REACTIONS (5)
  - Asthma [Unknown]
  - Pulmonary embolism [Unknown]
  - Coagulopathy [Unknown]
  - Adverse event [Unknown]
  - Seasonal allergy [Unknown]
